FAERS Safety Report 7293695-9 (Version None)
Quarter: 2011Q1

REPORT INFORMATION
  Report Type: 
  Country: None (occurrence: None)
  Receive Date: 20110215
  Receipt Date: 20110211
  Transmission Date: 20110831
  Serious: Yes (Other)
  Sender: FDA-Public Use
  Company Number: B0699647A

PATIENT
  Age: 57 Year
  Sex: Male

DRUGS (1)
  1. DERMOVATE [Suspect]
     Route: 061
     Dates: start: 19940101

REACTIONS (1)
  - CHORIORETINOPATHY [None]
